FAERS Safety Report 19184881 (Version 3)
Quarter: 2022Q3

REPORT INFORMATION
  Report Type: Report from Study
  Country: CA (occurrence: CA)
  Receive Date: 20210427
  Receipt Date: 20220810
  Transmission Date: 20221027
  Serious: Yes (Death, Hospitalization)
  Sender: FDA-Public Use
  Company Number: CA-HLS-202107411

PATIENT
  Age: 63 Year
  Sex: Male

DRUGS (3)
  1. CLOZARIL [Suspect]
     Active Substance: CLOZAPINE
     Indication: Product used for unknown indication
     Route: 048
     Dates: start: 20070226, end: 202202
  2. CLOZARIL [Suspect]
     Active Substance: CLOZAPINE
     Indication: Product used for unknown indication
     Route: 048
  3. CLOZARIL [Suspect]
     Active Substance: CLOZAPINE
     Indication: Product used for unknown indication
     Route: 048
     Dates: start: 20070226, end: 202202

REACTIONS (6)
  - Acute kidney injury [Unknown]
  - Cardiac failure [Unknown]
  - Myocardial infarction [Unknown]
  - Death [Fatal]
  - Sepsis [Unknown]
  - Somnolence [Unknown]

NARRATIVE: CASE EVENT DATE: 20220201
